FAERS Safety Report 17250659 (Version 1)
Quarter: 2020Q1

REPORT INFORMATION
  Report Type: Spontaneous
  Country: HU (occurrence: HU)
  Receive Date: 20200109
  Receipt Date: 20200109
  Transmission Date: 20200409
  Serious: Yes (Other)
  Sender: FDA-Public Use
  Company Number: HU-TEVA-2020-HU-1164208

PATIENT
  Age: 78 Year
  Sex: Male

DRUGS (7)
  1. CAVINTON [Concomitant]
     Active Substance: VINPOCETINE
     Route: 048
  2. VITAMIN B6 [Concomitant]
     Active Substance: PYRIDOXINE HYDROCHLORIDE
     Route: 048
  3. COVERCARD [Concomitant]
     Active Substance: AMLODIPINE BESYLATE\PERINDOPRIL ARGININE
     Route: 048
  4. NOOTROPIL [Concomitant]
     Active Substance: PIRACETAM
     Route: 048
  5. SERMION [Concomitant]
     Active Substance: NICERGOLINE
     Route: 048
  6. FRONTIN [Concomitant]
     Active Substance: ALPRAZOLAM
     Route: 048
  7. DONECEPT [Suspect]
     Active Substance: DONEPEZIL HYDROCHLORIDE
     Indication: MEMORY IMPAIRMENT
     Dosage: 5 MG 1 DAYS
     Route: 048
     Dates: start: 2019

REACTIONS (6)
  - Nasopharyngitis [Not Recovered/Not Resolved]
  - Muscle spasms [Not Recovered/Not Resolved]
  - Pruritus [Recovering/Resolving]
  - Renal cyst [Not Recovered/Not Resolved]
  - Rash [Not Recovered/Not Resolved]
  - Nephrolithiasis [Not Recovered/Not Resolved]

NARRATIVE: CASE EVENT DATE: 2019
